FAERS Safety Report 17312029 (Version 2)
Quarter: 2020Q1

REPORT INFORMATION
  Report Type: Spontaneous
  Country: US (occurrence: US)
  Receive Date: 20200123
  Receipt Date: 20200123
  Transmission Date: 20200409
  Serious: No
  Sender: FDA-Public Use
  Company Number: US-NOVOPROD-680372

PATIENT
  Age: 60 Year
  Sex: Female

DRUGS (2)
  1. OZEMPIC [Suspect]
     Active Substance: SEMAGLUTIDE
     Indication: DIABETES MELLITUS
     Dosage: 0.5 MG, QW
     Route: 058
  2. OZEMPIC [Suspect]
     Active Substance: SEMAGLUTIDE
     Indication: DIABETES MELLITUS
     Route: 058

REACTIONS (5)
  - Headache [Unknown]
  - Abdominal pain upper [Unknown]
  - Product dispensing error [Unknown]
  - Wrong technique in product usage process [Unknown]
  - Hypertension [Unknown]

NARRATIVE: CASE EVENT DATE: 20190810
